FAERS Safety Report 6570460-9 (Version None)
Quarter: 2010Q1

REPORT INFORMATION
  Report Type: 
  Country: None (occurrence: None)
  Receive Date: 20100204
  Receipt Date: 20091026
  Transmission Date: 20100710
  Serious: No
  Sender: FDA-Public Use
  Company Number: A0797994A

PATIENT
  Age: 50 Year
  Sex: Female
  Weight: 81.8 kg

DRUGS (2)
  1. ARIXTRA [Suspect]
     Indication: VASCULAR OCCLUSION
     Dosage: 7.5MG PER DAY
     Route: 058
     Dates: start: 20090710, end: 20090719
  2. WARFARIN [Concomitant]

REACTIONS (3)
  - INJECTION SITE HAEMATOMA [None]
  - INJECTION SITE PAIN [None]
  - PRODUCT QUALITY ISSUE [None]
